FAERS Safety Report 23211653 (Version 2)
Quarter: 2023Q4

REPORT INFORMATION
  Report Type: Spontaneous
  Country: GR (occurrence: GR)
  Receive Date: 20231121
  Receipt Date: 20231123
  Transmission Date: 20240110
  Serious: Yes (Hospitalization)
  Sender: FDA-Public Use
  Company Number: GR-BoehringerIngelheim-2023-BI-273323

PATIENT
  Age: 65 Year
  Sex: Male

DRUGS (2)
  1. PRADAXA [Suspect]
     Active Substance: DABIGATRAN ETEXILATE MESYLATE
     Indication: Cerebrovascular accident prophylaxis
     Route: 048
     Dates: end: 202311
  2. PRADAXA [Suspect]
     Active Substance: DABIGATRAN ETEXILATE MESYLATE
     Indication: Atrial fibrillation

REACTIONS (4)
  - Acute abdomen [Recovering/Resolving]
  - Splenic rupture [Recovering/Resolving]
  - Fall [Recovered/Resolved]
  - Pancreatic injury [Recovering/Resolving]

NARRATIVE: CASE EVENT DATE: 20231101
